FAERS Safety Report 4970660-5 (Version None)
Quarter: 2006Q2

REPORT INFORMATION
  Report Type: 
  Country: None (occurrence: None)
  Receive Date: 20060412
  Receipt Date: 20060323
  Transmission Date: 20061013
  Serious: Yes (Life-Threatening, Hospitalization, Disabling, Other)
  Sender: FDA-Public Use
  Company Number: US-MERCK-0603USA03894

PATIENT
  Age: 38 Year
  Sex: Male

DRUGS (4)
  1. SINGULAIR [Suspect]
     Route: 048
     Dates: end: 20060323
  2. ZYPREXA [Concomitant]
     Route: 065
  3. SEROQUEL [Concomitant]
     Route: 065
  4. CYMBALTA [Concomitant]
     Route: 065

REACTIONS (3)
  - HYPERLIPIDAEMIA [None]
  - PANCREATITIS ACUTE [None]
  - RESPIRATORY DISORDER [None]
